FAERS Safety Report 12208250 (Version 2)
Quarter: 2016Q1

REPORT INFORMATION
  Report Type: Report from Study
  Country: BR (occurrence: BR)
  Receive Date: 20160324
  Receipt Date: 20160328
  Transmission Date: 20160526
  Serious: Yes (Hospitalization, Other)
  Sender: FDA-Public Use
  Company Number: BR-JNJFOC-20160305389

PATIENT
  Age: 59 Year
  Sex: Female

DRUGS (1)
  1. SIMPONI [Suspect]
     Active Substance: GOLIMUMAB
     Indication: RHEUMATOID ARTHRITIS
     Route: 058
     Dates: start: 20150611, end: 20160303

REACTIONS (3)
  - Rheumatoid arthritis [Recovering/Resolving]
  - Swelling [Recovered/Resolved]
  - Purulence [Recovered/Resolved]

NARRATIVE: CASE EVENT DATE: 201603
